FAERS Safety Report 19218634 (Version 1)
Quarter: 2021Q2

REPORT INFORMATION
  Report Type: Spontaneous
  Country: US (occurrence: US)
  Receive Date: 20210505
  Receipt Date: 20210505
  Transmission Date: 20210717
  Serious: No
  Sender: FDA-Public Use
  Company Number: US-SA-2021SA141593

PATIENT
  Sex: Female

DRUGS (1)
  1. XYZAL ALLERGY 24HR [Suspect]
     Active Substance: LEVOCETIRIZINE DIHYDROCHLORIDE
     Indication: SEASONAL ALLERGY
     Dosage: TAKE MY ALLERGY MEDS FROM MORNING TO EVENING
     Route: 065

REACTIONS (1)
  - Somnolence [Unknown]
